FAERS Safety Report 14607295 (Version 2)
Quarter: 2018Q1

REPORT INFORMATION
  Report Type: Spontaneous
  Country: US (occurrence: US)
  Receive Date: 20180307
  Receipt Date: 20180316
  Transmission Date: 20180509
  Serious: No
  Sender: FDA-Public Use
  Company Number: US-PFIZER INC-2018091683

PATIENT
  Age: 70 Year
  Sex: Male
  Weight: 87.98 kg

DRUGS (1)
  1. GABAPENTIN. [Suspect]
     Active Substance: GABAPENTIN
     Indication: MUSCLE RUPTURE
     Dosage: UNK

REACTIONS (2)
  - Dry skin [Unknown]
  - Product use in unapproved indication [Unknown]
